FAERS Safety Report 5703942-X (Version None)
Quarter: 2008Q2

REPORT INFORMATION
  Report Type: 
  Country: None (occurrence: None)
  Receive Date: 20080409
  Receipt Date: 20080325
  Transmission Date: 20081010
  Serious: Yes (Life-Threatening, Hospitalization)
  Sender: FDA-Public Use
  Company Number: 2008S1004881

PATIENT
  Age: 45 Year
  Sex: Female
  Weight: 80 kg

DRUGS (1)
  1. DOXEPIN DURA (DOXEPIN HYDROCHLORIDE) [Suspect]
     Indication: INTENTIONAL OVERDOSE
     Dosage: 1500 MG; ONCE; ORAL
     Route: 048
     Dates: start: 20080321, end: 20080321

REACTIONS (4)
  - COMA [None]
  - GASTROINTESTINAL SOUNDS ABNORMAL [None]
  - INTENTIONAL OVERDOSE [None]
  - SUICIDE ATTEMPT [None]
